FAERS Safety Report 4739091-7 (Version None)
Quarter: 2005Q3

REPORT INFORMATION
  Report Type: 
  Country: None (occurrence: None)
  Receive Date: 20050810
  Receipt Date: 20050413
  Transmission Date: 20060218
  Serious: No
  Sender: FDA-Public Use
  Company Number: US-GLAXOSMITHKLINE-A0554003A

PATIENT
  Age: 35 Year
  Sex: Male

DRUGS (2)
  1. PAXIL CR [Suspect]
     Dosage: 25MG PER DAY
     Route: 048
     Dates: start: 20040419, end: 20050215
  2. WELLBUTRIN XL [Suspect]
     Route: 048
     Dates: start: 20050215, end: 20050407

REACTIONS (3)
  - ABNORMAL DREAMS [None]
  - INSOMNIA [None]
  - WEIGHT INCREASED [None]
